FAERS Safety Report 4984100-3 (Version None)
Quarter: 2006Q1

REPORT INFORMATION
  Report Type: 
  Country: None (occurrence: None)
  Receive Date: 20060302
  Receipt Date: 20051212
  Transmission Date: 20060701
  Serious: Yes (Death, Hospitalization)
  Sender: FDA-Public Use
  Company Number: 2042

PATIENT
  Age: 41 Year
  Sex: Female
  Weight: 110 kg

DRUGS (1)
  1. TARGRETIN [Suspect]
     Indication: MYCOSIS FUNGOIDES
     Dosage: 675 MG DAILY PO
     Route: 048
     Dates: start: 20041001, end: 20050401

REACTIONS (1)
  - PSEUDO LYMPHOMA [None]
